FAERS Safety Report 13256446 (Version 2)
Quarter: 2017Q1

REPORT INFORMATION
  Report Type: Spontaneous
  Country: FR (occurrence: FR)
  Receive Date: 20170221
  Receipt Date: 20170303
  Transmission Date: 20170428
  Serious: Yes (Other)
  Sender: FDA-Public Use
  Company Number: FR-PFIZER INC-2017074224

PATIENT
  Sex: Female

DRUGS (2)
  1. CYTARABINE SANDOZ [Suspect]
     Active Substance: CYTARABINE
     Dosage: UNK
  2. ZAVEDOS [Suspect]
     Active Substance: IDARUBICIN
     Dosage: UNK

REACTIONS (1)
  - Toxic skin eruption [Unknown]
